FAERS Safety Report 7680382-8 (Version None)
Quarter: 2011Q3

REPORT INFORMATION
  Report Type: 
  Country: None (occurrence: None)
  Receive Date: 20110812
  Receipt Date: 20110808
  Transmission Date: 20111222
  Serious: Yes (Other)
  Sender: FDA-Public Use
  Company Number: DE-GLAXOSMITHKLINE-D0072314A

PATIENT
  Age: 37 Year
  Sex: Female

DRUGS (3)
  1. SUMATRIPTAN SUCCINATE [Suspect]
     Indication: MIGRAINE
     Dosage: 100MG SINGLE DOSE
     Route: 048
  2. OMEPRAZOLE [Concomitant]
     Route: 065
  3. LEVOTHYROXINE SODIUM [Concomitant]
     Dosage: 50UG UNKNOWN
     Route: 048

REACTIONS (3)
  - FORMICATION [None]
  - SALIVARY HYPERSECRETION [None]
  - ORAL PAIN [None]
